FAERS Safety Report 9349811 (Version 2)
Quarter: 2013Q3

REPORT INFORMATION
  Report Type: Report from Study
  Country: JP (occurrence: JP)
  Receive Date: 20130614
  Receipt Date: 20130705
  Transmission Date: 20140515
  Serious: Yes (Life-Threatening, Hospitalization)
  Sender: FDA-Public Use
  Company Number: JP-GILEAD-2012-0059384

PATIENT
  Age: 42 Year
  Sex: Male

DRUGS (7)
  1. EMTRICITABINE/TENOFOVIR DISOPROXIL FUMARATE [Suspect]
     Indication: HIV INFECTION
     Dosage: 1 DF, QD
     Route: 048
     Dates: start: 20060613, end: 20120416
  2. REYATAZ [Suspect]
     Indication: HIV INFECTION
     Dosage: 300 MG, QD
     Route: 048
     Dates: start: 20060613, end: 20120329
  3. SULBACILLIN [Suspect]
     Indication: ARTHRITIS BACTERIAL
     Dosage: 1.5 G, TID
     Route: 042
     Dates: start: 20120328, end: 20130401
  4. RALTEGRAVIR [Suspect]
     Indication: HIV INFECTION
     Dosage: 800 MG, QD
     Route: 048
     Dates: start: 20120330
  5. NORVIR [Concomitant]
     Dosage: UNK
     Dates: start: 20060613, end: 20120329
  6. ADVATE [Concomitant]
     Dosage: UNK
     Dates: start: 20070413
  7. DIFLUCAN [Concomitant]
     Dosage: UNK
     Dates: start: 20120328, end: 20130401

REACTIONS (3)
  - Lymphoedema [Not Recovered/Not Resolved]
  - Arthritis bacterial [Recovered/Resolved]
  - Pseudomembranous colitis [Recovering/Resolving]
